FAERS Safety Report 8612950-0 (Version None)
Quarter: 2012Q3

REPORT INFORMATION
  Report Type: 
  Country: None (occurrence: None)
  Receive Date: 20120822
  Receipt Date: 20120522
  Transmission Date: 20120928
  Serious: No
  Sender: FDA-Public Use
  Company Number: US-ALLERGAN-1207209US

PATIENT
  Sex: Female

DRUGS (1)
  1. SANCTURA XR [Suspect]
     Indication: HYPERTONIC BLADDER
     Dosage: 60 MG, UNK
     Route: 048
     Dates: start: 20120102

REACTIONS (4)
  - DRUG INEFFECTIVE [None]
  - CYSTITIS [None]
  - DIZZINESS [None]
  - INSOMNIA [None]
